FAERS Safety Report 25635016 (Version 1)
Quarter: 2025Q3

REPORT INFORMATION
  Report Type: Spontaneous
  Country: US (occurrence: US)
  Receive Date: 20250801
  Receipt Date: 20250801
  Transmission Date: 20251020
  Serious: Yes (Other)
  Sender: STAQ PHARMA INC. OUTSOURCING
  Company Number: US-STAQ Pharma, Inc-2181680

PATIENT
  Age: 40 Year
  Sex: Male
  Weight: 105.9 kg

DRUGS (2)
  1. ROCURONIUM BROMIDE [Suspect]
     Active Substance: ROCURONIUM BROMIDE
     Indication: Femoroacetabular impingement
     Dates: start: 20250717, end: 20250717
  2. ROCURONIUM BROMIDE [Suspect]
     Active Substance: ROCURONIUM BROMIDE
     Indication: Arthroscopy

REACTIONS (1)
  - Drug effect less than expected [Recovered/Resolved]

NARRATIVE: CASE EVENT DATE: 20250717
